FAERS Safety Report 8136132-4 (Version None)
Quarter: 2012Q1

REPORT INFORMATION
  Report Type: 
  Country: None (occurrence: None)
  Receive Date: 20120214
  Receipt Date: 20120202
  Transmission Date: 20120608
  Serious: No
  Sender: FDA-Public Use
  Company Number: US-COVIDIEN/TYCO HEALTHCARE/MALLINCKRODT-T201200574

PATIENT
  Sex: Female

DRUGS (2)
  1. FENTANYL-100 [Suspect]
     Dosage: 25 UG/HR EVERY THREE DAYS
     Dates: start: 20120202
  2. MORPHINE [Concomitant]
     Dosage: UNK

REACTIONS (3)
  - FEELING DRUNK [None]
  - SOMNOLENCE [None]
  - DIZZINESS [None]
